FAERS Safety Report 6345188-0 (Version None)
Quarter: 2009Q3

REPORT INFORMATION
  Report Type: 
  Country: None (occurrence: None)
  Receive Date: 20090909
  Receipt Date: 20090903
  Transmission Date: 20100115
  Serious: Yes (Hospitalization)
  Sender: FDA-Public Use
  Company Number: BR-JNJFOC-20090902317

PATIENT
  Age: 43 Year
  Sex: Female

DRUGS (5)
  1. ORTHO EVRA [Suspect]
     Indication: CONTRACEPTION
     Route: 062
     Dates: end: 20090821
  2. AMOXICILLIN [Interacting]
     Indication: PHARYNGITIS
     Route: 042
     Dates: start: 20090701, end: 20090701
  3. AMOXICILLIN [Interacting]
     Route: 065
     Dates: start: 20090101
  4. METICORTEN [Interacting]
     Indication: PHARYNGITIS
     Route: 065
     Dates: start: 20090101
  5. OMEPRAZOLE [Concomitant]
     Indication: GASTRITIS
     Route: 065

REACTIONS (8)
  - ABDOMINAL DISTENSION [None]
  - ABDOMINAL PAIN [None]
  - BREAST PAIN [None]
  - DRUG INTERACTION [None]
  - MENSTRUATION DELAYED [None]
  - PHARYNGITIS [None]
  - POLLAKIURIA [None]
  - SOMNOLENCE [None]
